FAERS Safety Report 7518099-2 (Version None)
Quarter: 2011Q2

REPORT INFORMATION
  Report Type: 
  Country: None (occurrence: None)
  Receive Date: 20110523
  Receipt Date: 20110506
  Transmission Date: 20111010
  Serious: Yes (Other)
  Sender: FDA-Public Use
  Company Number: AUR-APL-2011-01091

PATIENT
  Age: 57 Year
  Sex: Female
  Weight: 58.0604 kg

DRUGS (5)
  1. TESTOSTERONE [Concomitant]
  2. PROGESTERONE [Concomitant]
  3. CLIMARA [Concomitant]
  4. FLUCONAZOLE [Suspect]
     Indication: CANDIDIASIS
     Dosage: 5 ML, WEEKLY, ORAL
     Route: 048
     Dates: start: 20110307
  5. VITAMIN B-12 [Concomitant]

REACTIONS (7)
  - POISONING [None]
  - NAUSEA [None]
  - DIZZINESS [None]
  - FEELING ABNORMAL [None]
  - PRODUCT SUBSTITUTION ISSUE [None]
  - BALANCE DISORDER [None]
  - MUSCULAR WEAKNESS [None]
